FAERS Safety Report 4640719-0 (Version None)
Quarter: 2005Q2

REPORT INFORMATION
  Report Type: 
  Country: None (occurrence: None)
  Receive Date: 20050325
  Receipt Date: 20050201
  Transmission Date: 20051028
  Serious: Yes (Life-Threatening, Other)
  Sender: FDA-Public Use
  Company Number: 2005-00401

PATIENT
  Age: 41 Year
  Sex: Female

DRUGS (2)
  1. FERRLECIT [Suspect]
     Indication: IRON DEFICIENCY ANAEMIA
     Dosage: 250 MG/ 100ML NS IV OVER 1 HR, INTRAVENOUS
     Route: 042
     Dates: start: 20050127, end: 20050127
  2. FERRLECIT [Suspect]
     Indication: IRON DEFICIENCY ANAEMIA
     Dosage: 250 MG/ 100ML NS IV OVER 1 HR, INTRAVENOUS
     Route: 042
     Dates: start: 20050131, end: 20050131

REACTIONS (6)
  - BACK PAIN [None]
  - DYSPNOEA [None]
  - HYPERSENSITIVITY [None]
  - HYPOTENSION [None]
  - JOINT SWELLING [None]
  - PARAESTHESIA [None]
